FAERS Safety Report 8412981-X (Version None)
Quarter: 2012Q2

REPORT INFORMATION
  Report Type: 
  Country: None (occurrence: None)
  Receive Date: 20120605
  Receipt Date: 20120529
  Transmission Date: 20120825
  Serious: No
  Sender: FDA-Public Use
  Company Number: US-AMGEN-USASP2012033797

PATIENT
  Age: 70 Year
  Sex: Female

DRUGS (2)
  1. ENBREL [Suspect]
     Indication: RHEUMATOID ARTHRITIS
     Dosage: 50 MG, QWK
     Dates: start: 20110215
  2. ARAVA [Concomitant]
     Dosage: 3 MG, UNK

REACTIONS (6)
  - NAUSEA [None]
  - HEPATIC ENZYME INCREASED [None]
  - FOOD POISONING [None]
  - RETCHING [None]
  - ERYTHEMA [None]
  - OEDEMA PERIPHERAL [None]
